FAERS Safety Report 8618173-3 (Version None)
Quarter: 2012Q3

REPORT INFORMATION
  Report Type: 
  Country: None (occurrence: None)
  Receive Date: 20120824
  Receipt Date: 20111110
  Transmission Date: 20120928
  Serious: No
  Sender: FDA-Public Use
  Company Number: US-ASTRAZENECA-2011SE00436

PATIENT
  Age: 75 Year
  Sex: Female
  Weight: 61.2 kg

DRUGS (6)
  1. CLARITIN [Concomitant]
     Indication: MULTIPLE ALLERGIES
  2. NEXIUM [Concomitant]
     Indication: GASTROOESOPHAGEAL REFLUX DISEASE
  3. PREMARIN [Concomitant]
     Indication: HORMONE REPLACEMENT THERAPY
  4. SYMBICORT [Suspect]
     Indication: ASTHMA
     Dosage: 80/4.5 MCG 2 PUFFS BID
     Route: 055
     Dates: start: 20101005
  5. BENICAR [Concomitant]
     Indication: HYPERTENSION
  6. LIPITOR [Concomitant]
     Indication: BLOOD CHOLESTEROL INCREASED

REACTIONS (5)
  - BLOOD PRESSURE INCREASED [None]
  - CIRCUMSTANCE OR INFORMATION CAPABLE OF LEADING TO MEDICATION ERROR [None]
  - FATIGUE [None]
  - TREMOR [None]
  - ANXIETY [None]
